FAERS Safety Report 21058259 (Version 4)
Quarter: 2022Q4

REPORT INFORMATION
  Report Type: Report from Study
  Country: AU (occurrence: AU)
  Receive Date: 20220708
  Receipt Date: 20221108
  Transmission Date: 20230112
  Serious: Yes (Other)
  Sender: FDA-Public Use
  Company Number: AU-NOVARTISPH-NVSC2022AU023850

PATIENT
  Age: 52 Year
  Sex: Female

DRUGS (3)
  1. KESIMPTA [Suspect]
     Active Substance: OFATUMUMAB
     Indication: Relapsing-remitting multiple sclerosis
     Dosage: 20 MG, QMO
     Route: 058
     Dates: start: 20220202
  2. GABAPENTIN [Concomitant]
     Active Substance: GABAPENTIN
     Indication: Thoracic vertebral fracture
     Dosage: UNK
     Route: 065
     Dates: start: 2014
  3. TOPAMAX [Concomitant]
     Active Substance: TOPIRAMATE
     Indication: Thoracic vertebral fracture
     Dosage: UNK
     Route: 065
     Dates: start: 2014

REACTIONS (17)
  - Optic neuritis [Unknown]
  - Dementia Alzheimer^s type [Unknown]
  - Insomnia [Unknown]
  - Stress [Unknown]
  - Sleep disorder [Unknown]
  - Fall [Unknown]
  - Ligament sprain [Unknown]
  - Mobility decreased [Unknown]
  - Back pain [Not Recovered/Not Resolved]
  - Muscular weakness [Unknown]
  - Nasopharyngitis [Unknown]
  - Pain [Unknown]
  - Rhinorrhoea [Recovered/Resolved]
  - Fatigue [Not Recovered/Not Resolved]
  - Product storage error [Unknown]
  - Off label use of device [Unknown]
  - Drug ineffective [Unknown]

NARRATIVE: CASE EVENT DATE: 20220202
